FAERS Safety Report 18856072 (Version 1)
Quarter: 2021Q1

REPORT INFORMATION
  Report Type: Spontaneous
  Country: ES (occurrence: ES)
  Receive Date: 20210206
  Receipt Date: 20210206
  Transmission Date: 20210420
  Serious: Yes (Other)
  Sender: FDA-Public Use
  Company Number: ES-AMGEN-ESPSP2021017155

PATIENT

DRUGS (1)
  1. FILGRASTIM [Suspect]
     Active Substance: FILGRASTIM
     Indication: HAEMATOPOIETIC STEM CELL MOBILISATION
     Dosage: 5 MICROGRAM/KILOGRAM, Q12H FOR FIVE DAYS
     Route: 065

REACTIONS (2)
  - Neutropenia [Recovered/Resolved]
  - Hepatic enzyme increased [Recovered/Resolved]
